FAERS Safety Report 6574152-1 (Version None)
Quarter: 2010Q1

REPORT INFORMATION
  Report Type: 
  Country: None (occurrence: None)
  Receive Date: 20100208
  Receipt Date: 20100202
  Transmission Date: 20100710
  Serious: Yes (Death)
  Sender: FDA-Public Use
  Company Number: US-ROCHE-683742

PATIENT
  Weight: 57.3 kg

DRUGS (17)
  1. BEVACIZUMAB [Suspect]
     Indication: GLIOBLASTOMA
     Route: 065
     Dates: start: 20091210
  2. ERLOTINIB [Suspect]
     Indication: GLIOBLASTOMA
     Route: 065
     Dates: start: 20091130
  3. ERLOTINIB [Suspect]
     Route: 065
     Dates: start: 20091210, end: 20091219
  4. TEMOZOLOMIDE [Suspect]
     Indication: GLIOBLASTOMA
     Route: 048
     Dates: start: 20091130, end: 20091221
  5. DECADRON [Concomitant]
     Dates: start: 20091026
  6. CELEXA [Concomitant]
     Dates: start: 20050101
  7. KEPPRA [Concomitant]
     Dates: start: 20091026
  8. PEPCID [Concomitant]
     Dates: start: 20091026
  9. IBUPROFEN [Concomitant]
     Dates: start: 20091021
  10. THYROID HORMONE NOS [Concomitant]
     Dosage: DRUG NAME: THYROID SUPPLEMENT
     Dates: start: 19980101
  11. MAG CITRATE [Concomitant]
     Dates: start: 20090101
  12. BACTRIM DS [Concomitant]
     Dates: start: 20091130
  13. COLACE [Concomitant]
     Dates: start: 20091201
  14. COLACE [Concomitant]
     Dates: start: 20091202
  15. COLACE [Concomitant]
     Dates: start: 20091210
  16. SENNA [Concomitant]
     Dates: start: 20091201
  17. SENNA [Concomitant]
     Dates: start: 20091202

REACTIONS (1)
  - DEATH [None]
